FAERS Safety Report 21438242 (Version 2)
Quarter: 2025Q2

REPORT INFORMATION
  Report Type: Spontaneous
  Country: US (occurrence: US)
  Receive Date: 20221011
  Receipt Date: 20250528
  Transmission Date: 20250716
  Serious: Yes (Other)
  Sender: AUROBINDO
  Company Number: US-MLMSERVICE-20220926-3820266-1

PATIENT
  Age: 15 Year
  Sex: Male

DRUGS (6)
  1. OLANZAPINE [Suspect]
     Active Substance: OLANZAPINE
     Indication: Agitation
     Route: 048
  2. QUETIAPINE [Suspect]
     Active Substance: QUETIAPINE
     Indication: Agitation
     Dosage: 50 MILLIGRAM, ONCE A DAY, (EVERY NIGHT AT BEDTIME)
     Route: 048
  3. HALOPERIDOL [Suspect]
     Active Substance: HALOPERIDOL
     Indication: Agitation
     Route: 048
  4. HALOPERIDOL [Suspect]
     Active Substance: HALOPERIDOL
     Route: 042
  5. LEVETIRACETAM [Concomitant]
     Active Substance: LEVETIRACETAM
     Indication: Seizure
     Route: 065
  6. LORAZEPAM [Concomitant]
     Active Substance: LORAZEPAM
     Indication: Agitation
     Dosage: 3 MILLIGRAM, EVERY FOUR HOUR
     Route: 042

REACTIONS (2)
  - Condition aggravated [Recovered/Resolved]
  - Catatonia [Recovered/Resolved]
